FAERS Safety Report 6158723-2 (Version None)
Quarter: 2009Q2

REPORT INFORMATION
  Report Type: 
  Country: None (occurrence: None)
  Receive Date: 20090417
  Receipt Date: 20090410
  Transmission Date: 20091009
  Serious: Yes (Hospitalization)
  Sender: FDA-Public Use
  Company Number: A0779035A

PATIENT
  Age: 60 Year
  Sex: Male
  Weight: 125 kg

DRUGS (10)
  1. AVANDIA [Suspect]
     Indication: DIABETES MELLITUS
     Dosage: 4MG PER DAY
     Route: 048
     Dates: start: 20020601, end: 20080401
  2. METFORMIN HCL [Concomitant]
  3. STARLIX [Concomitant]
  4. AMARYL [Concomitant]
  5. TOPROL-XL [Concomitant]
  6. ZOCOR [Concomitant]
  7. LIPITOR [Concomitant]
  8. KLONOPIN [Concomitant]
  9. PROZAC [Concomitant]
  10. ZESTRIL [Concomitant]

REACTIONS (1)
  - MYOCARDIAL INFARCTION [None]
